FAERS Safety Report 15091031 (Version 1)
Quarter: 2018Q2

REPORT INFORMATION
  Report Type: Spontaneous
  Country: US (occurrence: US)
  Receive Date: 20180629
  Receipt Date: 20180629
  Transmission Date: 20180711
  Serious: No
  Sender: FDA-Public Use
  Company Number: US-AMGEN-USASP2014076898

PATIENT
  Age: 59 Year
  Sex: Female

DRUGS (1)
  1. PROLIA [Suspect]
     Active Substance: DENOSUMAB
     Indication: OSTEOPOROSIS POSTMENOPAUSAL
     Dosage: UNK
     Route: 065
     Dates: start: 201409

REACTIONS (16)
  - Feeling hot [Unknown]
  - Feeling abnormal [Unknown]
  - Dysphagia [Recovered/Resolved]
  - Chromaturia [Unknown]
  - Back disorder [Unknown]
  - Dysuria [Unknown]
  - Streptococcal infection [Unknown]
  - Malaise [Unknown]
  - Localised infection [Not Recovered/Not Resolved]
  - Fluid retention [Unknown]
  - Burning sensation [Unknown]
  - Weight increased [Unknown]
  - Musculoskeletal pain [Unknown]
  - Drug hypersensitivity [Unknown]
  - Pharyngeal oedema [Recovered/Resolved]
  - Alopecia [Unknown]

NARRATIVE: CASE EVENT DATE: 201410
